FAERS Safety Report 5499191-3 (Version None)
Quarter: 2007Q4

REPORT INFORMATION
  Report Type: 
  Country: None (occurrence: None)
  Receive Date: 20071026
  Receipt Date: 20071024
  Transmission Date: 20080405
  Serious: Yes (Life-Threatening)
  Sender: FDA-Public Use
  Company Number: JP-BRISTOL-MYERS SQUIBB COMPANY-13956933

PATIENT
  Age: 52 Year
  Sex: Female

DRUGS (2)
  1. BRIPLATIN [Suspect]
     Indication: PLEURAL MESOTHELIOMA MALIGNANT
     Route: 041
     Dates: start: 20070309, end: 20071005
  2. ALIMTA [Suspect]
     Indication: PLEURAL MESOTHELIOMA MALIGNANT
     Route: 041
     Dates: start: 20070309, end: 20071005

REACTIONS (11)
  - ANAPHYLACTIC REACTION [None]
  - ARTERIOSCLEROSIS [None]
  - BLOOD LACTATE DEHYDROGENASE INCREASED [None]
  - BLOOD UREA [None]
  - BRONCHITIS [None]
  - CONSTIPATION [None]
  - DRUG ERUPTION [None]
  - HEPATIC ENZYME INCREASED [None]
  - LYMPHOCYTE COUNT DECREASED [None]
  - NAUSEA [None]
  - RED BLOOD CELL COUNT DECREASED [None]
